FAERS Safety Report 10048100 (Version 1)
Quarter: 2014Q1

REPORT INFORMATION
  Report Type: Spontaneous
  Country: GB (occurrence: GB)
  Receive Date: 20140331
  Receipt Date: 20140331
  Transmission Date: 20141002
  Serious: Yes (Other)
  Sender: FDA-Public Use
  Company Number: GB-PFIZER INC-2014086986

PATIENT
  Age: 65 Year
  Sex: Female
  Weight: 88.9 kg

DRUGS (5)
  1. ATORVASTATIN [Suspect]
     Indication: HYPERCHOLESTEROLAEMIA
     Dosage: 10 MG, UNK
     Route: 048
     Dates: start: 20140214, end: 20140228
  2. COENZYME Q10 [Concomitant]
     Dosage: UNK
  3. DIHYDROCODEINE [Concomitant]
     Dosage: UNK
  4. LOSARTAN POTASSIUM [Concomitant]
     Dosage: UNK
  5. METFORMIN [Concomitant]
     Dosage: UNK

REACTIONS (3)
  - Muscular weakness [Recovered/Resolved]
  - Myalgia [Recovered/Resolved]
  - Muscle tightness [Recovering/Resolving]
